FAERS Safety Report 12977761 (Version 1)
Quarter: 2016Q4

REPORT INFORMATION
  Report Type: Spontaneous
  Country: GR (occurrence: GR)
  Receive Date: 20161128
  Receipt Date: 20161128
  Transmission Date: 20170207
  Serious: Yes (Hospitalization, Other)
  Sender: FDA-Public Use
  Company Number: GR-BRISTOL-MYERS SQUIBB COMPANY-BMS-2016-099041

PATIENT
  Age: 65 Year
  Sex: Female

DRUGS (2)
  1. DALTEPARIN [Suspect]
     Active Substance: DALTEPARIN
     Indication: PRODUCT USED FOR UNKNOWN INDICATION
     Route: 065
  2. WARFARIN SODIUM. [Suspect]
     Active Substance: WARFARIN SODIUM
     Indication: PRODUCT USED FOR UNKNOWN INDICATION
     Route: 065

REACTIONS (8)
  - Vascular pseudoaneurysm [Unknown]
  - Therapeutic embolisation [Unknown]
  - Ankle fracture [Unknown]
  - Intra-abdominal haematoma [Unknown]
  - Lower limb artery perforation [Unknown]
  - Fracture [Unknown]
  - Haematoma [Unknown]
  - Fall [Unknown]
